FAERS Safety Report 7528518-3 (Version None)
Quarter: 2011Q2

REPORT INFORMATION
  Report Type: 
  Country: None (occurrence: None)
  Receive Date: 20110607
  Receipt Date: 20110128
  Transmission Date: 20111010
  Serious: No
  Sender: FDA-Public Use
  Company Number: US-ASTRAZENECA-2011SE07879

PATIENT
  Age: 41 Year
  Sex: Female

DRUGS (9)
  1. CLONAZEPAM [Concomitant]
     Dosage: UNKNOWN
  2. PRILOSEC OTC [Suspect]
     Indication: DYSPEPSIA
     Route: 048
     Dates: start: 20101001
  3. PRILOSEC OTC [Suspect]
  4. PRILOSEC OTC [Suspect]
     Indication: ANXIETY
     Route: 048
     Dates: start: 20101001
  5. PRILOSEC OTC [Suspect]
     Indication: PANIC ATTACK
     Route: 048
     Dates: start: 20101001
  6. VITAMINS [Concomitant]
     Dosage: UNKNOWN
  7. PRILOSEC OTC [Suspect]
  8. PRILOSEC OTC [Suspect]
  9. LOVAZA [Concomitant]
     Dosage: UNKNOWN

REACTIONS (3)
  - DIARRHOEA [None]
  - NAUSEA [None]
  - GASTROINTESTINAL PAIN [None]
